FAERS Safety Report 5056389-6 (Version None)
Quarter: 2006Q3

REPORT INFORMATION
  Report Type: 
  Country: None (occurrence: None)
  Receive Date: 20060720
  Receipt Date: 20060522
  Transmission Date: 20061208
  Serious: Yes (Hospitalization)
  Sender: FDA-Public Use
  Company Number: JP-BRISTOL-MYERS SQUIBB COMPANY-13388475

PATIENT
  Age: 68 Year
  Sex: Male

DRUGS (5)
  1. TAXOL [Suspect]
     Indication: LUNG NEOPLASM MALIGNANT
     Route: 041
     Dates: start: 20060519, end: 20060519
  2. PARAPLATIN [Suspect]
     Indication: LUNG NEOPLASM MALIGNANT
  3. DECADRON [Concomitant]
     Indication: PREMEDICATION
     Route: 041
     Dates: start: 20060519, end: 20060519
  4. GASTER [Concomitant]
     Indication: PREMEDICATION
     Route: 041
     Dates: start: 20060519, end: 20060519
  5. CHLOR-TRIMETON [Concomitant]
     Indication: PREMEDICATION
     Route: 041
     Dates: start: 20060519, end: 20060519

REACTIONS (1)
  - SHOCK [None]
